FAERS Safety Report 7864118-3 (Version None)
Quarter: 2011Q4

REPORT INFORMATION
  Report Type: 
  Country: None (occurrence: None)
  Receive Date: 20111028
  Receipt Date: 20111018
  Transmission Date: 20120403
  Serious: Yes (Other)
  Sender: FDA-Public Use
  Company Number: US-JNJFOC-20101000842

PATIENT
  Sex: Male
  Weight: 53.2 kg

DRUGS (8)
  1. PRILOSEC [Concomitant]
  2. FLAGYL [Concomitant]
  3. IRON [Concomitant]
  4. PREDNISONE [Concomitant]
  5. VITAMIN D [Concomitant]
  6. MERCAPTOPURINE [Concomitant]
  7. INFLIXIMAB, RECOMBINANT [Suspect]
     Indication: INFLAMMATORY BOWEL DISEASE
     Route: 042
     Dates: start: 20100927
  8. MESALAMINE [Concomitant]

REACTIONS (1)
  - LABORATORY TEST ABNORMAL [None]
